FAERS Safety Report 10871265 (Version 2)
Quarter: 2015Q1

REPORT INFORMATION
  Report Type: Spontaneous
  Country: US (occurrence: US)
  Receive Date: 20150226
  Receipt Date: 20150312
  Transmission Date: 20150721
  Serious: Yes (Other)
  Sender: FDA-Public Use
  Company Number: US-BAXTER-2015BAX010394

PATIENT
  Sex: Male
  Weight: 95 kg

DRUGS (1)
  1. GAMMAGARD S/D [Suspect]
     Active Substance: HUMAN IMMUNOGLOBULIN G
     Indication: HYPOGLOBULINAEMIA
     Route: 042
     Dates: start: 1999, end: 2007

REACTIONS (5)
  - Malaise [Not Recovered/Not Resolved]
  - Sinusitis [Recovered/Resolved]
  - Immunodeficiency common variable [Not Recovered/Not Resolved]
  - Pneumonia [Recovered/Resolved]
  - Bronchitis [Recovered/Resolved]

NARRATIVE: CASE EVENT DATE: 2013
